FAERS Safety Report 8333009-6 (Version None)
Quarter: 2012Q2

REPORT INFORMATION
  Report Type: 
  Country: None (occurrence: None)
  Receive Date: 20120503
  Receipt Date: 20120420
  Transmission Date: 20120825
  Serious: Yes (Other)
  Sender: FDA-Public Use
  Company Number: PHHY2012AR034571

PATIENT
  Sex: Female

DRUGS (4)
  1. VOLTAREN [Suspect]
     Indication: BONE DISORDER
     Dosage: 75 MG, DAILY
     Dates: start: 20120101
  2. TRAPAX [Concomitant]
     Indication: SLEEP DISORDER
  3. DIOVAN [Suspect]
     Indication: HYPERTENSION
     Dosage: 160 MG, DAILY
     Dates: start: 20020101
  4. VENORUTON [Suspect]
     Indication: CARDIOVASCULAR DISORDER
     Dosage: 300 MG, DAILY
     Dates: start: 20020101

REACTIONS (4)
  - BLOOD PRESSURE FLUCTUATION [None]
  - FALL [None]
  - INJURY [None]
  - LOOSE TOOTH [None]
